FAERS Safety Report 11164256 (Version 1)
Quarter: 2015Q2

REPORT INFORMATION
  Report Type: Spontaneous
  Country: US (occurrence: US)
  Receive Date: 20150604
  Receipt Date: 20150604
  Transmission Date: 20150821
  Serious: Yes (Other)
  Sender: FDA-Public Use
  Company Number: US-SA-2014SA085572

PATIENT
  Age: 53 Year
  Sex: Female

DRUGS (3)
  1. LANTUS SOLOSTAR [Suspect]
     Active Substance: INSULIN GLARGINE
     Indication: BLOOD GLUCOSE INCREASED
     Dosage: DOSE: 50 TO 55 UNITS AT BEDTIME
     Route: 065
  2. SOLOSTAR [Concomitant]
     Active Substance: DEVICE
     Indication: BLOOD GLUCOSE INCREASED
  3. LANTUS SOLOSTAR [Suspect]
     Active Substance: INSULIN GLARGINE
     Indication: BLOOD GLUCOSE INCREASED
     Dosage: DOSE: 50 TO 55 UNITS AT BEDTIME
     Route: 065
     Dates: start: 201406

REACTIONS (8)
  - Disorientation [Unknown]
  - Nausea [Unknown]
  - Insomnia [Unknown]
  - Headache [Unknown]
  - Hunger [Unknown]
  - Chills [Unknown]
  - Blood glucose decreased [Unknown]
  - Hyperhidrosis [Unknown]
